FAERS Safety Report 21327899 (Version 3)
Quarter: 2024Q4

REPORT INFORMATION
  Report Type: Spontaneous
  Country: GB (occurrence: GB)
  Receive Date: 20220913
  Receipt Date: 20241104
  Transmission Date: 20250115
  Serious: Yes (Other)
  Sender: AUROBINDO
  Company Number: GB-MLMSERVICE-20220826-3760559-1

PATIENT
  Age: 68 Year
  Sex: Male

DRUGS (5)
  1. PEMETREXED [Interacting]
     Active Substance: PEMETREXED
     Indication: Non-small cell lung cancer
     Dosage: UNK
     Route: 065
  2. CARBOPLATIN [Interacting]
     Active Substance: CARBOPLATIN
     Indication: Non-small cell lung cancer
     Dosage: UNK
     Route: 065
  3. PEMBROLIZUMAB [Interacting]
     Active Substance: PEMBROLIZUMAB
     Indication: Non-small cell lung cancer
     Dosage: UNK
     Route: 065
  4. SOTORASIB [Interacting]
     Active Substance: SOTORASIB
     Indication: Non-small cell lung cancer
     Dosage: 480 MILLIGRAM, ONCE A DAY
     Route: 065
  5. SOTORASIB [Interacting]
     Active Substance: SOTORASIB
     Dosage: 960 MILLIGRAM, ONCE A DAY
     Route: 065

REACTIONS (4)
  - Colitis [Recovering/Resolving]
  - Diarrhoea [Recovering/Resolving]
  - Drug interaction [Recovering/Resolving]
  - Hypertransaminasaemia [Recovering/Resolving]
